FAERS Safety Report 23803380 (Version 2)
Quarter: 2024Q3

REPORT INFORMATION
  Report Type: Report from Study
  Country: GB (occurrence: GB)
  Receive Date: 20240501
  Receipt Date: 20240709
  Transmission Date: 20241017
  Serious: Yes (Other)
  Sender: ROCHE
  Company Number: GB-ROCHE-3484342

PATIENT
  Age: 58 Year
  Sex: Female

DRUGS (12)
  1. TOCILIZUMAB [Suspect]
     Active Substance: TOCILIZUMAB
     Indication: Rheumatoid arthritis
     Route: 058
     Dates: start: 20201001
  2. TOCILIZUMAB [Suspect]
     Active Substance: TOCILIZUMAB
     Indication: Giant cell arteritis
     Route: 058
     Dates: start: 20230705, end: 20231220
  3. PREDNISOLONE [Concomitant]
     Active Substance: PREDNISOLONE
  4. BOTOX [Concomitant]
     Active Substance: ONABOTULINUMTOXINA
  5. CALCIUM [Concomitant]
     Active Substance: CALCIUM
  6. ASPIRIN [Concomitant]
     Active Substance: ASPIRIN
  7. OMEPRAZOLE [Concomitant]
     Active Substance: OMEPRAZOLE
  8. ALENDRONIC ACID [Concomitant]
     Active Substance: ALENDRONIC ACID
  9. TRAMADOL [Concomitant]
     Active Substance: TRAMADOL\TRAMADOL HYDROCHLORIDE
  10. SUMATRIPTAN [Concomitant]
     Active Substance: SUMATRIPTAN
  11. VAGIFEM [Concomitant]
     Active Substance: ESTRADIOL
  12. AMITRIPTYLINE [Concomitant]
     Active Substance: AMITRIPTYLINE

REACTIONS (2)
  - Palpitations [Not Recovered/Not Resolved]
  - Infection [Unknown]
